FAERS Safety Report 5019929-9 (Version None)
Quarter: 2006Q2

REPORT INFORMATION
  Report Type: 
  Country: None (occurrence: None)
  Receive Date: 20060607
  Receipt Date: 20060526
  Transmission Date: 20061013
  Serious: Yes (Other)
  Sender: FDA-Public Use
  Company Number: DE-JNJFOC-20060506153

PATIENT
  Age: 46 Year
  Sex: Female

DRUGS (1)
  1. TOPAMAX [Suspect]
     Indication: MIGRAINE
     Route: 048

REACTIONS (4)
  - MUSCLE SPASTICITY [None]
  - RASH [None]
  - SPEECH DISORDER [None]
  - VERTIGO [None]
